FAERS Safety Report 10946341 (Version 2)
Quarter: 2015Q1

REPORT INFORMATION
  Report Type: Spontaneous
  Country: JP (occurrence: JP)
  Receive Date: 20150323
  Receipt Date: 20150330
  Transmission Date: 20150721
  Serious: Yes (Other)
  Sender: FDA-Public Use
  Company Number: JP-GLAXOSMITHKLINE-JP2015JPN033972

PATIENT
  Age: 2 Year
  Sex: Female

DRUGS (2)
  1. ALKERAN [Suspect]
     Active Substance: MELPHALAN
     Indication: SURGERY
     Dosage: UNK
  2. BUSULFAN [Suspect]
     Active Substance: BUSULFAN
     Indication: SURGERY
     Dosage: UNK
     Route: 065

REACTIONS (5)
  - Pulmonary vascular disorder [Recovering/Resolving]
  - Pulmonary hypertension [Recovering/Resolving]
  - Right ventricular failure [Unknown]
  - Oxygen saturation decreased [Unknown]
  - Computerised tomogram thorax abnormal [Unknown]
